FAERS Safety Report 9233578 (Version 2)
Quarter: 2013Q2

REPORT INFORMATION
  Report Type: Spontaneous
  Country: US (occurrence: US)
  Receive Date: 20130416
  Receipt Date: 20130416
  Transmission Date: 20140414
  Serious: No
  Sender: FDA-Public Use
  Company Number: US-BANPHARM-20120367

PATIENT
  Age: 76 Year
  Sex: Female
  Weight: 56.7 kg

DRUGS (8)
  1. ALEVE LIQUID GELS 220MG [Suspect]
     Indication: PAIN
     Route: 048
  2. ALEVE GEL CAPS [Suspect]
     Indication: PAIN
     Route: 048
     Dates: start: 2011
  3. ALEVE CAPLETS [Suspect]
     Indication: PAIN
     Route: 048
  4. ESTROGEN [Concomitant]
  5. ULTRAM [Concomitant]
  6. WATER PILL [Concomitant]
  7. THYROID PILL [Concomitant]
  8. HIGH BLOOD PRESSURE MEDICATION [Concomitant]
     Indication: HYPERTENSION

REACTIONS (4)
  - Blood pressure increased [Unknown]
  - Dyspepsia [Unknown]
  - Incorrect drug administration duration [Unknown]
  - Incorrect dose administered [Unknown]
